FAERS Safety Report 4583843-3 (Version None)
Quarter: 2005Q1

REPORT INFORMATION
  Report Type: 
  Country: None (occurrence: None)
  Receive Date: 20050211
  Receipt Date: 20050131
  Transmission Date: 20050727
  Serious: Yes (Other)
  Sender: FDA-Public Use
  Company Number: 2005022478

PATIENT
  Age: 73 Year
  Sex: Male
  Weight: 145.151 kg

DRUGS (10)
  1. NEURONTIN [Suspect]
     Indication: DIABETIC NEUROPATHY
     Dosage: ORAL
     Route: 048
     Dates: start: 20010101
  2. AMITRIPTYLINE HYDROCHLORIDE [Suspect]
     Indication: DIABETIC NEUROPATHY
  3. GLIPIZIDE [Concomitant]
  4. AMIODARONE HCL [Concomitant]
  5. ACETYLSALICYLIC ACID [Concomitant]
  6. CITALOPRAM HYDROBROMIDE [Concomitant]
  7. SIMVASTATIN [Concomitant]
  8. ZOLPIDEM TARTRATE [Concomitant]
  9. FUROSEMIDE [Concomitant]
  10. POTASSIUM CHLORIDE [Concomitant]

REACTIONS (9)
  - BLOOD GLUCOSE INCREASED [None]
  - DRUG INEFFECTIVE [None]
  - DYSPNOEA [None]
  - INADEQUATE ANALGESIA [None]
  - MEDICAL DEVICE COMPLICATION [None]
  - POST PROCEDURAL COMPLICATION [None]
  - POST PROCEDURAL PAIN [None]
  - RIB FRACTURE [None]
  - TRIPLE VESSEL BYPASS GRAFT [None]
